FAERS Safety Report 17577690 (Version 1)
Quarter: 2020Q1

REPORT INFORMATION
  Report Type: Spontaneous
  Country: MX (occurrence: MX)
  Receive Date: 20200324
  Receipt Date: 20200324
  Transmission Date: 20200409
  Serious: Yes (Death, Hospitalization, Other)
  Sender: FDA-Public Use
  Company Number: MX-AMGEN-MEXSP2020047246

PATIENT
  Age: 41 Year
  Sex: Male

DRUGS (3)
  1. NEUPOGEN [Suspect]
     Active Substance: FILGRASTIM
     Indication: HAEMATOPOIETIC STEM CELL MOBILISATION
     Dosage: 300 MICROGRAM, QD FOR 03 DAYS
     Route: 058
  2. LITHIUM. [Concomitant]
     Active Substance: LITHIUM
     Indication: AMYOTROPHIC LATERAL SCLEROSIS
  3. COENZYME Q10 [Concomitant]
     Active Substance: UBIDECARENONE
     Indication: AMYOTROPHIC LATERAL SCLEROSIS

REACTIONS (3)
  - Increased bronchial secretion [Unknown]
  - Respiratory distress [Unknown]
  - Respiratory failure [Fatal]
